FAERS Safety Report 13793342 (Version 1)
Quarter: 2017Q3

REPORT INFORMATION
  Report Type: Spontaneous
  Country: US (occurrence: US)
  Receive Date: 20170726
  Receipt Date: 20170726
  Transmission Date: 20171127
  Serious: No
  Sender: FDA-Public Use
  Company Number: US-B.I. PHARMACEUTICALS,INC./RIDGEFIELD-2017-BI-040994

PATIENT
  Age: 66 Year
  Sex: Male

DRUGS (5)
  1. BYSAGLUR [Concomitant]
     Indication: TYPE 2 DIABETES MELLITUS
     Dosage: ONCE A DAY;  FORM STRENGTH: 40 UNITS; FORMULATION: SUBCUTANEOUS
     Route: 058
  2. JARDIANCE [Suspect]
     Active Substance: EMPAGLIFLOZIN
     Indication: TYPE 2 DIABETES MELLITUS
     Dosage: ONE TABLET ONCE A DAY;  FORM STRENGTH: 10 MG; FORMULATION: TABLET? ADMINISTRATION CORRECT? YES ?ACTI
     Route: 048
     Dates: start: 20170628, end: 20170712
  3. VICTOZA [Concomitant]
     Active Substance: LIRAGLUTIDE
     Indication: TYPE 2 DIABETES MELLITUS
     Dosage: ONCE A DAY;  FORM STRENGTH: 1.2 MG; FORMULATION: SUBCUTANEOUS
     Route: 058
  4. MICARDIS HCT [Concomitant]
     Active Substance: HYDROCHLOROTHIAZIDE\TELMISARTAN
     Indication: CARDIOVASCULAR DISORDER
     Dosage: ONE TABLET ONCE A DAY;  FORM STRENGTH: 80 MG /25 MG; FORMULATION: TABLET
     Route: 048
  5. METFORMIN [Concomitant]
     Active Substance: METFORMIN HYDROCHLORIDE
     Indication: TYPE 2 DIABETES MELLITUS
     Dosage: ONE TABLET TWICE A DAY;  FORM STRENGTH: 1000 MG; FORMULATION: TABLET
     Route: 048

REACTIONS (3)
  - Polyuria [Recovered/Resolved]
  - Hypotension [Recovered/Resolved]
  - Hyperglycaemia [Recovered/Resolved]

NARRATIVE: CASE EVENT DATE: 20170628
